FAERS Safety Report 8296358-6 (Version None)
Quarter: 2012Q2

REPORT INFORMATION
  Report Type: 
  Country: None (occurrence: None)
  Receive Date: 20120418
  Receipt Date: 20120411
  Transmission Date: 20120825
  Serious: Yes (Hospitalization)
  Sender: FDA-Public Use
  Company Number: DE-MEDIMMUNE-MEDI-0015356

PATIENT
  Sex: Male
  Weight: 1.2 kg

DRUGS (1)
  1. SYNAGIS [Suspect]
     Dates: start: 20110901, end: 20120201

REACTIONS (1)
  - APNOEA [None]
